FAERS Safety Report 20752524 (Version 1)
Quarter: 2022Q2

REPORT INFORMATION
  Report Type: Spontaneous
  Country: US (occurrence: None)
  Receive Date: 20220426
  Receipt Date: 20220426
  Transmission Date: 20220721
  Serious: No
  Sender: FDA-Public Use
  Company Number: US-ROCHE-2911184

PATIENT
  Sex: Male

DRUGS (2)
  1. ESBRIET [Suspect]
     Active Substance: PIRFENIDONE
     Indication: Idiopathic pulmonary fibrosis
     Dosage: DAY 1 THROUGH 7: 1 TABLET BY MOUTH THREE TIMES A DAY WITH MEALS DAY 8 THROUGH 14: 2 TABLETS BY MOUTH
     Route: 048
     Dates: start: 202108
  2. ESBRIET [Suspect]
     Active Substance: PIRFENIDONE
     Dosage: 1 TABLET BY MOUTH THREE TIMES A DAY FOR 7 DAYS THEN 2 TABLETS BY MOUTH THREE TIMES A DAY FOR 7 DAYS
     Route: 048
     Dates: start: 20210827

REACTIONS (4)
  - Insomnia [Recovered/Resolved]
  - Anxiety [Not Recovered/Not Resolved]
  - Pruritus [Recovered/Resolved]
  - Restless legs syndrome [Recovered/Resolved]
